FAERS Safety Report 8321683-X (Version None)
Quarter: 2012Q2

REPORT INFORMATION
  Report Type: 
  Country: None (occurrence: None)
  Receive Date: 20120426
  Receipt Date: 20120411
  Transmission Date: 20120825
  Serious: Yes (Hospitalization, Other)
  Sender: FDA-Public Use
  Company Number: GER/GER/12/0023984

PATIENT
  Age: 77 Year
  Sex: Male

DRUGS (7)
  1. MEMANTINE HCL [Concomitant]
  2. DORZOLAMIDE [Concomitant]
  3. RISPERIDONE [Suspect]
     Indication: PRODUCT USED FOR UNKNOWN INDICATION
     Dosage: 0.25 MG, 3 IN 1 D, ORAL
     Route: 048
     Dates: end: 20110701
  4. ASPIRIN [Concomitant]
  5. TORSEMIDE [Concomitant]
  6. METOPROLOL SUCCINATE [Concomitant]
  7. DIGITOXIN TAB [Concomitant]

REACTIONS (10)
  - PLEUROTHOTONUS [None]
  - MOBILITY DECREASED [None]
  - PSYCHOMOTOR HYPERACTIVITY [None]
  - MUSCULOSKELETAL STIFFNESS [None]
  - PSYCHIATRIC SYMPTOM [None]
  - EXTRAPYRAMIDAL DISORDER [None]
  - DISORIENTATION [None]
  - HALLUCINATION, AUDITORY [None]
  - OPHTHALMOPLEGIA [None]
  - DRUG WITHDRAWAL SYNDROME [None]
